FAERS Safety Report 20842421 (Version 1)
Quarter: 2022Q2

REPORT INFORMATION
  Report Type: Spontaneous
  Country: DK (occurrence: DK)
  Receive Date: 20220518
  Receipt Date: 20220518
  Transmission Date: 20220721
  Serious: Yes (Hospitalization, Disabling)
  Sender: FDA-Public Use
  Company Number: None

PATIENT
  Age: 64 Year
  Sex: Male

DRUGS (1)
  1. IMRALDI [Suspect]
     Active Substance: ADALIMUMAB
     Indication: Psoriatic arthropathy
     Route: 058
     Dates: start: 20190603, end: 20190729

REACTIONS (11)
  - Palmoplantar keratoderma [Not Recovered/Not Resolved]
  - Dry skin [Not Recovered/Not Resolved]
  - Sensory disturbance [Unknown]
  - Erythema [Not Recovered/Not Resolved]
  - Erysipelas [Unknown]
  - Palmoplantar pustulosis [Not Recovered/Not Resolved]
  - Peripheral swelling [Unknown]
  - Pyrexia [Recovered/Resolved]
  - Skin exfoliation [Not Recovered/Not Resolved]
  - Pain in extremity [Not Recovered/Not Resolved]
  - Skin fissures [Not Recovered/Not Resolved]

NARRATIVE: CASE EVENT DATE: 20190701
